APPROVED DRUG PRODUCT: OXALIPLATIN
Active Ingredient: OXALIPLATIN
Strength: 100MG/VIAL
Dosage Form/Route: INJECTABLE;INTRAVENOUS
Application: A207385 | Product #002 | TE Code: AP
Applicant: GLAND PHARMA LTD
Approved: May 23, 2017 | RLD: No | RS: No | Type: RX